FAERS Safety Report 5504739-6 (Version None)
Quarter: 2007Q4

REPORT INFORMATION
  Report Type: 
  Country: None (occurrence: None)
  Receive Date: 20071031
  Receipt Date: 20071018
  Transmission Date: 20080405
  Serious: Yes (Hospitalization)
  Sender: FDA-Public Use
  Company Number: MEDI-0006100

PATIENT
  Age: 3 Month
  Sex: Female

DRUGS (4)
  1. SYNAGIS [Suspect]
     Indication: PREMATURE BABY
     Dosage: 15 MG/KG, INTRAMUSCULAR
     Route: 030
     Dates: start: 20071012, end: 20071012
  2. FUROSEMIDE [Concomitant]
  3. SPIRONOLACTONE [Concomitant]
  4. FERRIC PYROPHOSPHATE SOLUBLE [Concomitant]

REACTIONS (1)
  - PLATELET COUNT DECREASED [None]
